FAERS Safety Report 20001276 (Version 1)
Quarter: 2021Q4

REPORT INFORMATION
  Report Type: Spontaneous
  Country: US (occurrence: US)
  Receive Date: 20211027
  Receipt Date: 20211027
  Transmission Date: 20220303
  Serious: No
  Sender: FDA-Public Use
  Company Number: None

PATIENT
  Age: 56 Year
  Sex: Male

DRUGS (1)
  1. EPCLUSA [Suspect]
     Active Substance: SOFOSBUVIR\VELPATASVIR
     Indication: Hepatitis C
     Dosage: OTHER DOSE:400/100 MG;
     Route: 048
     Dates: start: 20211014

REACTIONS (5)
  - Arthralgia [None]
  - Joint swelling [None]
  - Dyspnoea [None]
  - Muscle discomfort [None]
  - Therapy cessation [None]

NARRATIVE: CASE EVENT DATE: 20211020
